FAERS Safety Report 5040416-6 (Version None)
Quarter: 2006Q2

REPORT INFORMATION
  Report Type: 
  Country: None (occurrence: None)
  Receive Date: 20060630
  Receipt Date: 20060616
  Transmission Date: 20061013
  Serious: Yes (Other)
  Sender: FDA-Public Use
  Company Number: FR-GLAXOSMITHKLINE-B0428365A

PATIENT
  Age: 57 Year
  Sex: Female

DRUGS (2)
  1. TOPOTECAN [Suspect]
     Indication: OVARIAN CANCER
     Dosage: 9.5MGM2 PER DAY
     Route: 042
     Dates: start: 20060602, end: 20060606
  2. ENDOXAN [Suspect]
     Indication: OVARIAN CANCER
     Dosage: 3G PER DAY
     Route: 042
     Dates: start: 20060418, end: 20060419

REACTIONS (1)
  - MUCOSAL INFLAMMATION [None]
